FAERS Safety Report 9628575 (Version 1)
Quarter: 2013Q4

REPORT INFORMATION
  Report Type: Spontaneous
  Country: FI (occurrence: FI)
  Receive Date: 20131017
  Receipt Date: 20131017
  Transmission Date: 20140711
  Serious: Yes (Disabling)
  Sender: FDA-Public Use
  Company Number: FI-JNJFOC-20131007449

PATIENT
  Age: 68 Year
  Sex: Male

DRUGS (7)
  1. XARELTO [Suspect]
     Indication: CEREBROVASCULAR ACCIDENT PROPHYLAXIS
     Route: 048
     Dates: start: 2013, end: 20130921
  2. XARELTO [Suspect]
     Indication: ATRIAL FIBRILLATION
     Route: 048
     Dates: start: 2013, end: 20130921
  3. ATORVASTATIN [Concomitant]
     Indication: HYPERCHOLESTEROLAEMIA
     Route: 048
     Dates: start: 2008
  4. OLMETEC [Concomitant]
     Indication: BLOOD PRESSURE MANAGEMENT
     Route: 065
     Dates: start: 2008
  5. ORLOC [Concomitant]
     Indication: CORONARY ARTERY DISEASE
     Route: 065
     Dates: start: 2008
  6. ALFUZOSIN [Concomitant]
     Indication: PROSTATE CANCER
     Route: 065
     Dates: start: 2012
  7. ENANTON [Concomitant]
     Indication: PROSTATE CANCER
     Route: 065
     Dates: start: 2013

REACTIONS (4)
  - Cerebral haemorrhage [Not Recovered/Not Resolved]
  - Visual field defect [Not Recovered/Not Resolved]
  - Aphasia [Not Recovered/Not Resolved]
  - Headache [Not Recovered/Not Resolved]
